FAERS Safety Report 4529384-0 (Version None)
Quarter: 2004Q4

REPORT INFORMATION
  Report Type: 
  Country: None (occurrence: None)
  Receive Date: 20041214
  Receipt Date: 20041206
  Transmission Date: 20050328
  Serious: Yes (Life-Threatening, Hospitalization, Disabling)
  Sender: FDA-Public Use
  Company Number: 2004AP06166

PATIENT
  Age: 57 Year
  Sex: Female

DRUGS (7)
  1. IRESSA [Suspect]
     Indication: NON-SMALL CELL LUNG CANCER
     Dosage: 250 MG DAILY PO
     Route: 048
     Dates: start: 20041119, end: 20041202
  2. MEPRAL [Concomitant]
  3. LEXOTAN [Concomitant]
  4. CISPLATIN [Concomitant]
  5. TAXOL [Concomitant]
  6. VINORELBINE [Concomitant]
  7. GEMCITABINE [Concomitant]

REACTIONS (1)
  - RESPIRATORY FAILURE [None]
